FAERS Safety Report 4867004-6 (Version None)
Quarter: 2005Q4

REPORT INFORMATION
  Report Type: 
  Country: None (occurrence: None)
  Receive Date: 20051222
  Receipt Date: 20051212
  Transmission Date: 20060501
  Serious: Yes (Other)
  Sender: FDA-Public Use
  Company Number: GXKR2005AU02134

PATIENT
  Age: 71 Year
  Sex: Male

DRUGS (1)
  1. DICLOFENAC (NGX) (DICLOFENAC) TABLET, 25MG [Suspect]
     Indication: OSTEOARTHRITIS
     Dosage: 25 MG, QD, ORAL
     Route: 048

REACTIONS (3)
  - RETINAL DETACHMENT [None]
  - RETINAL TEAR [None]
  - SURGICAL PROCEDURE REPEATED [None]
